FAERS Safety Report 7115569-6 (Version None)
Quarter: 2010Q4

REPORT INFORMATION
  Report Type: 
  Country: None (occurrence: None)
  Receive Date: 20101122
  Receipt Date: 20101109
  Transmission Date: 20110411
  Serious: Yes (Other)
  Sender: FDA-Public Use
  Company Number: US-NOVOPROD-318206

PATIENT
  Age: 13 Year
  Sex: Male
  Weight: 59.864 kg

DRUGS (5)
  1. NORDITROPIN NORDIFLEX [Suspect]
     Indication: GROWTH HORMONE DEFICIENCY
     Dosage: .2 MG, QD
  2. NORDITROPIN NORDIFLEX [Suspect]
     Dosage: 2.0 MG, QD
  3. ZITHROMAX [Suspect]
     Indication: INFLUENZA LIKE ILLNESS
     Dosage: 250 MG, UNK
  4. ZITHROMAX [Suspect]
     Indication: UPPER RESPIRATORY TRACT INFECTION
  5. ZITHROMAX [Suspect]
     Indication: NASOPHARYNGITIS

REACTIONS (8)
  - BACTERIAL INFECTION [None]
  - BLOOD PRESSURE DECREASED [None]
  - DEHYDRATION [None]
  - DIARRHOEA [None]
  - HEART RATE INCREASED [None]
  - INCORRECT DOSE ADMINISTERED [None]
  - NAUSEA [None]
  - VOMITING [None]
